FAERS Safety Report 7146100-7 (Version None)
Quarter: 2010Q4

REPORT INFORMATION
  Report Type: 
  Country: None (occurrence: None)
  Receive Date: 20101208
  Receipt Date: 20101206
  Transmission Date: 20110411
  Serious: Yes (Disabling, Other)
  Sender: FDA-Public Use
  Company Number: US-MERCK-0903USA02032

PATIENT
  Age: 57 Year
  Sex: Female
  Weight: 60 kg

DRUGS (2)
  1. FOSAMAX [Suspect]
     Indication: OSTEOPOROSIS
     Route: 048
     Dates: start: 20000420, end: 20010101
  2. FOSAMAX [Suspect]
     Route: 048
     Dates: start: 20010701, end: 20070201

REACTIONS (29)
  - ANXIETY [None]
  - ARTHRALGIA [None]
  - BLOOD CHOLESTEROL INCREASED [None]
  - BLOOD HOMOCYSTEINE INCREASED [None]
  - CONSTIPATION [None]
  - DENTAL CARIES [None]
  - DENTAL FISTULA [None]
  - DEPRESSION [None]
  - DIZZINESS [None]
  - GINGIVAL DISORDER [None]
  - HAEMORRHOIDAL HAEMORRHAGE [None]
  - HEADACHE [None]
  - HYPOAESTHESIA ORAL [None]
  - IMPAIRED HEALING [None]
  - INSOMNIA [None]
  - JAW DISORDER [None]
  - MEMORY IMPAIRMENT [None]
  - NAUSEA [None]
  - ORAL INFECTION [None]
  - OSTEITIS [None]
  - OSTEOARTHRITIS [None]
  - OSTEOMYELITIS [None]
  - OSTEONECROSIS OF JAW [None]
  - OSTEOPENIA [None]
  - PERIPHERAL COLDNESS [None]
  - POLLAKIURIA [None]
  - TOOTH ABSCESS [None]
  - TRAUMATIC HAEMATOMA [None]
  - VULVOVAGINAL CANDIDIASIS [None]
